FAERS Safety Report 7691909-4 (Version None)
Quarter: 2011Q3

REPORT INFORMATION
  Report Type: 
  Country: None (occurrence: None)
  Receive Date: 20110818
  Receipt Date: 20110809
  Transmission Date: 20111222
  Serious: Yes (Other)
  Sender: FDA-Public Use
  Company Number: JP-ASTRAZENECA-2011SE48719

PATIENT
  Age: 32 Year
  Sex: Male

DRUGS (8)
  1. PROMAC [Concomitant]
     Route: 048
  2. LORAMET [Concomitant]
     Route: 048
  3. HIV MEDICATION [Suspect]
     Indication: HIV INFECTION
  4. SEROQUEL [Suspect]
     Route: 048
  5. HIRNAMIN [Concomitant]
     Route: 048
  6. TETRAMIDE [Concomitant]
     Route: 048
  7. ZITHROMAX [Concomitant]
     Route: 048
  8. VALGANCICLOVIR [Concomitant]
     Route: 048

REACTIONS (1)
  - IMMUNE RECONSTITUTION SYNDROME [None]
